FAERS Safety Report 19881856 (Version 2)
Quarter: 2021Q4

REPORT INFORMATION
  Report Type: Spontaneous
  Country: PL (occurrence: PL)
  Receive Date: 20210924
  Receipt Date: 20211004
  Transmission Date: 20220303
  Serious: No
  Sender: FDA-Public Use
  Company Number: PL-LUPIN PHARMACEUTICALS INC.-2021-17981

PATIENT
  Age: 89 Year
  Sex: Female

DRUGS (3)
  1. SERTRALINE [Interacting]
     Active Substance: SERTRALINE HYDROCHLORIDE
     Indication: Depression
     Dosage: UNK
     Route: 065
  2. MEMANTINE [Interacting]
     Active Substance: MEMANTINE
     Indication: Dementia
     Dosage: UNK
     Route: 065
  3. OMEPRAZOLE [Interacting]
     Active Substance: OMEPRAZOLE
     Indication: Upper gastrointestinal haemorrhage
     Dosage: UNK
     Route: 065

REACTIONS (4)
  - Dizziness [Unknown]
  - Drug interaction [Unknown]
  - Contraindicated product administered [Unknown]
  - Drug level increased [Unknown]
